FAERS Safety Report 4652017-X (Version None)
Quarter: 2005Q2

REPORT INFORMATION
  Report Type: 
  Country: None (occurrence: None)
  Receive Date: 20050504
  Receipt Date: 20041111
  Transmission Date: 20051028
  Serious: Yes (Hospitalization)
  Sender: FDA-Public Use
  Company Number: US-2004-BP-11602BP

PATIENT
  Age: 74 Year
  Sex: Male

DRUGS (11)
  1. MOBIC [Suspect]
     Indication: OSTEOARTHRITIS
     Route: 048
  2. COUMADIN [Concomitant]
     Indication: PROPHYLAXIS
     Route: 048
  3. FUROSEMIDE [Concomitant]
     Indication: HYPERTENSION
     Route: 048
  4. ALDACTONE [Concomitant]
     Route: 048
  5. COREG [Concomitant]
     Route: 048
  6. TRAMADOL [Concomitant]
     Route: 048
  7. FLOMAX [Concomitant]
     Indication: BENIGN PROSTATIC HYPERPLASIA
     Route: 048
  8. ACTOSE [Concomitant]
     Indication: HYPERGLYCAEMIA
     Route: 048
  9. COZAAR [Concomitant]
     Route: 048
  10. PRANDIN [Concomitant]
     Route: 048
  11. K-DUR 10 [Concomitant]

REACTIONS (4)
  - OEDEMA PERIPHERAL [None]
  - SKIN ULCER [None]
  - STAPHYLOCOCCAL INFECTION [None]
  - WEIGHT DECREASED [None]
